FAERS Safety Report 9761001 (Version 2)
Quarter: 2014Q1

REPORT INFORMATION
  Report Type: Spontaneous
  Country: JP (occurrence: JP)
  Receive Date: 20131216
  Receipt Date: 20140131
  Transmission Date: 20141002
  Serious: Yes (Hospitalization)
  Sender: FDA-Public Use
  Company Number: JP-WATSON-2013-22599

PATIENT
  Age: 33 Year
  Sex: Female

DRUGS (3)
  1. PROGESTERONE (UNKNOWN) [Suspect]
     Indication: PROGESTIN REPLACEMENT THERAPY
     Dosage: 800 MG, DAILY
     Route: 067
     Dates: start: 20131107, end: 20131202
  2. ESTRANA [Concomitant]
     Indication: OESTROGEN REPLACEMENT THERAPY
     Dosage: UNK
     Route: 062
     Dates: start: 20131026, end: 20131213
  3. ESTRANA [Concomitant]
     Dosage: UNK
     Route: 062
     Dates: start: 20131129, end: 20131213

REACTIONS (4)
  - Abortion threatened [Recovered/Resolved]
  - Subchorionic haematoma [Recovered/Resolved]
  - Metrorrhagia [Recovered/Resolved]
  - Maternal exposure during pregnancy [Unknown]
